FAERS Safety Report 26020830 (Version 1)
Quarter: 2025Q4

REPORT INFORMATION
  Report Type: Spontaneous
  Country: US (occurrence: US)
  Receive Date: 20251110
  Receipt Date: 20251110
  Transmission Date: 20260118
  Serious: No
  Sender: GRIFOLS
  Company Number: US-IGSA-BIG0039246

PATIENT
  Sex: Female

DRUGS (1)
  1. GAMUNEX-C [Suspect]
     Active Substance: HUMAN IMMUNOGLOBULIN G
     Indication: Product used for unknown indication
     Dosage: UNK

REACTIONS (3)
  - Urticaria [Unknown]
  - Hypersensitivity [Unknown]
  - Recalled product administered [Unknown]

NARRATIVE: CASE EVENT DATE: 20251027
